FAERS Safety Report 11635331 (Version 1)
Quarter: 2015Q4

REPORT INFORMATION
  Report Type: Other
  Country: JP (occurrence: JP)
  Receive Date: 20151016
  Receipt Date: 20151016
  Transmission Date: 20160304
  Serious: Yes (Hospitalization)
  Sender: FDA-Public Use
  Company Number: JP-JUBILANT GENERICS LIMITED-1043022

PATIENT
  Age: 85 Year
  Sex: Female

DRUGS (3)
  1. YOKUKANSAN [Concomitant]
     Active Substance: HERBALS
  2. OLANZAPINE. [Suspect]
     Active Substance: OLANZAPINE
  3. VALPROIC ACID. [Concomitant]
     Active Substance: VALPROIC ACID

REACTIONS (2)
  - Akinesia [Recovered/Resolved]
  - Skin ulcer [Recovered/Resolved]

NARRATIVE: CASE EVENT DATE: 20151005
